FAERS Safety Report 10345216 (Version 1)
Quarter: 2014Q3

REPORT INFORMATION
  Report Type: Spontaneous
  Country: US (occurrence: None)
  Receive Date: 20140724
  Receipt Date: 20140724
  Transmission Date: 20150326
  Serious: No
  Sender: FDA-Public Use
  Company Number: None

PATIENT
  Age: 60 Year
  Sex: Female
  Weight: 110.68 kg

DRUGS (7)
  1. FLOVENT [Concomitant]
     Active Substance: FLUTICASONE PROPIONATE
  2. TRAZODONE [Concomitant]
     Active Substance: TRAZODONE HYDROCHLORIDE
  3. CENTRUM SILVER, ADULTS OVER 50 [Concomitant]
  4. SERTRALINE [Concomitant]
     Active Substance: SERTRALINE HYDROCHLORIDE
  5. RAMIPRIL. [Concomitant]
     Active Substance: RAMIPRIL
  6. SEREVENT [Concomitant]
     Active Substance: SALMETEROL XINAFOATE
  7. PREVACID [Suspect]
     Active Substance: LANSOPRAZOLE
     Indication: GASTROOESOPHAGEAL REFLUX DISEASE
     Dosage: 2X/DAY  MOUTH?STARTED TAKING MANY YEARS AGO  STILL TAKING
     Route: 048

REACTIONS (3)
  - Disease recurrence [None]
  - Product quality issue [None]
  - Product substitution issue [None]
